FAERS Safety Report 12478497 (Version 2)
Quarter: 2016Q3

REPORT INFORMATION
  Report Type: Spontaneous
  Country: US (occurrence: US)
  Receive Date: 20160618
  Receipt Date: 20160921
  Transmission Date: 20161109
  Serious: No
  Sender: FDA-Public Use
  Company Number: US-ASTRAZENECA-2016SE54356

PATIENT
  Sex: Female

DRUGS (6)
  1. TAGRISSO [Suspect]
     Active Substance: OSIMERTINIB
     Indication: LUNG NEOPLASM MALIGNANT
     Route: 048
     Dates: start: 20160216
  2. TAGRISSO [Suspect]
     Active Substance: OSIMERTINIB
     Indication: NON-SMALL CELL LUNG CANCER
     Route: 048
     Dates: start: 20160216
  3. TAGRISSO [Suspect]
     Active Substance: OSIMERTINIB
     Indication: ABDOMINAL DISCOMFORT
     Route: 048
     Dates: start: 20160216
  4. DOXYCYCLINE HYCLATE. [Concomitant]
     Active Substance: DOXYCYCLINE HYCLATE
  5. NEXIUM [Suspect]
     Active Substance: ESOMEPRAZOLE MAGNESIUM
     Indication: FLATULENCE
     Route: 048
  6. MUPIROCIN. [Concomitant]
     Active Substance: MUPIROCIN

REACTIONS (9)
  - Onychoclasis [Unknown]
  - Vomiting [Unknown]
  - Sinusitis [Unknown]
  - Hair growth abnormal [Unknown]
  - Flatulence [Unknown]
  - Nail growth abnormal [Unknown]
  - Diarrhoea [Unknown]
  - Dry skin [Unknown]
  - Dry mouth [Unknown]
